FAERS Safety Report 9908843 (Version 1)
Quarter: 2014Q1

REPORT INFORMATION
  Report Type: Report from Study
  Country: US (occurrence: US)
  Receive Date: 20140219
  Receipt Date: 20140219
  Transmission Date: 20141002
  Serious: Yes (Hospitalization)
  Sender: FDA-Public Use
  Company Number: US-ASTELLAS-2014US001658

PATIENT
  Age: 31 Year
  Sex: Male

DRUGS (24)
  1. ERLOTINIB TABLET [Suspect]
     Indication: COLORECTAL CANCER METASTATIC
     Dosage: UNK
     Route: 065
     Dates: start: 2011
  2. AVASTIN /01555201/ [Suspect]
     Indication: COLORECTAL CANCER METASTATIC
     Dosage: UNK
     Route: 065
     Dates: start: 200906
  3. AVASTIN /01555201/ [Suspect]
     Dosage: UNK
     Route: 065
     Dates: start: 2011
  4. XELODA [Suspect]
     Indication: COLORECTAL CANCER METASTATIC
     Dosage: UNK
     Route: 065
     Dates: start: 200907, end: 200908
  5. XELODA [Suspect]
     Indication: METASTASIS
  6. CETUXIMAB [Concomitant]
     Indication: COLORECTAL CANCER METASTATIC
     Dosage: UNK
     Route: 065
     Dates: start: 201008, end: 201102
  7. CETUXIMAB [Concomitant]
     Dosage: UNK
     Route: 065
     Dates: start: 2011
  8. IRINOTECAN                         /01280202/ [Concomitant]
     Indication: COLORECTAL CANCER METASTATIC
     Dosage: UNK
     Route: 065
     Dates: start: 201008, end: 201102
  9. HYOSCYAMINE [Concomitant]
     Indication: PRODUCT USED FOR UNKNOWN INDICATION
     Dosage: UNK
     Route: 065
  10. ZOFRAN                             /00955301/ [Concomitant]
     Indication: PRODUCT USED FOR UNKNOWN INDICATION
     Dosage: UNK
     Route: 065
  11. CLARITIN                           /00917501/ [Concomitant]
     Indication: PRODUCT USED FOR UNKNOWN INDICATION
     Dosage: UNK
     Route: 065
  12. OXYCONTIN [Concomitant]
     Indication: PRODUCT USED FOR UNKNOWN INDICATION
     Dosage: UNK
     Route: 065
  13. PEPCID                             /00706001/ [Concomitant]
     Indication: PRODUCT USED FOR UNKNOWN INDICATION
     Dosage: UNK
     Route: 065
  14. PROMETHAZINE [Concomitant]
     Indication: PRODUCT USED FOR UNKNOWN INDICATION
     Dosage: UNK
     Route: 065
  15. PYRIDIUM [Concomitant]
     Indication: PRODUCT USED FOR UNKNOWN INDICATION
     Dosage: UNK
     Route: 065
  16. QUETIAPINE FUMARATE [Concomitant]
     Indication: PRODUCT USED FOR UNKNOWN INDICATION
     Dosage: UNK
     Route: 065
  17. REGLAN                             /00041902/ [Concomitant]
     Indication: PRODUCT USED FOR UNKNOWN INDICATION
     Dosage: UNK
     Route: 065
  18. OXYCODONE [Concomitant]
     Indication: PRODUCT USED FOR UNKNOWN INDICATION
     Dosage: UNK
     Route: 065
  19. MIRALAX                            /00754501/ [Concomitant]
     Indication: PRODUCT USED FOR UNKNOWN INDICATION
     Dosage: UNK
     Route: 065
  20. LEUCOVORIN                         /00566702/ [Concomitant]
     Indication: COLORECTAL CANCER
     Dosage: UNK
     Route: 065
     Dates: start: 201001
  21. LEUCOVORIN                         /00566702/ [Concomitant]
     Dosage: UNK
     Route: 065
     Dates: start: 200906
  22. LEUCOVORIN                         /00566702/ [Concomitant]
     Dosage: UNK
     Route: 065
     Dates: start: 200711
  23. OXALIPLATIN [Concomitant]
     Indication: COLORECTAL CANCER
     Dosage: UNK
     Dates: start: 201002, end: 201007
  24. FLUOROURACIL [Concomitant]
     Indication: COLORECTAL CANCER
     Dosage: UNK
     Route: 065

REACTIONS (13)
  - Off label use [Unknown]
  - Constipation [Unknown]
  - Neuropathy peripheral [Unknown]
  - Urethral obstruction [Unknown]
  - Catheter site pain [Unknown]
  - Malignant neoplasm progression [Unknown]
  - Renal failure [Unknown]
  - Nausea [Unknown]
  - Vomiting [Unknown]
  - Urinary tract infection [Unknown]
  - Blood creatinine increased [Unknown]
  - Depression [Unknown]
  - Decreased appetite [Recovering/Resolving]
